FAERS Safety Report 7388591-2 (Version None)
Quarter: 2011Q2

REPORT INFORMATION
  Report Type: 
  Country: None (occurrence: None)
  Receive Date: 20110401
  Receipt Date: 20110321
  Transmission Date: 20111010
  Serious: Yes (Other)
  Sender: FDA-Public Use
  Company Number: CA-JNJFOC-20110308713

PATIENT
  Age: 29 Year
  Sex: Female

DRUGS (1)
  1. NICOTINE [Suspect]
     Indication: SMOKING CESSATION THERAPY
     Route: 062

REACTIONS (7)
  - TACHYCARDIA [None]
  - DISORIENTATION [None]
  - URTICARIA [None]
  - VOMITING [None]
  - TREMOR [None]
  - EUPHORIC MOOD [None]
  - NAUSEA [None]
